FAERS Safety Report 5255331-2 (Version None)
Quarter: 2007Q1

REPORT INFORMATION
  Report Type: 
  Country: None (occurrence: None)
  Receive Date: 20070305
  Receipt Date: 20070305
  Transmission Date: 20070707
  Serious: Yes (Death)
  Sender: FDA-Public Use
  Company Number: GR-GLAXOSMITHKLINE-B0460423A

PATIENT
  Age: 60 Year
  Sex: Female

DRUGS (2)
  1. ZINACEF [Suspect]
     Dates: start: 20070219
  2. CIPROFLOXACIN HYDROCHLORIDE [Concomitant]
     Indication: URINARY TRACT INFECTION
     Route: 065
     Dates: start: 20070201

REACTIONS (2)
  - ANAPHYLACTIC SHOCK [None]
  - INCORRECT ROUTE OF DRUG ADMINISTRATION [None]
